FAERS Safety Report 17485454 (Version 1)
Quarter: 2020Q1

REPORT INFORMATION
  Report Type: Spontaneous
  Country: CL (occurrence: CL)
  Receive Date: 20200302
  Receipt Date: 20200302
  Transmission Date: 20200409
  Serious: Yes (Other)
  Sender: FDA-Public Use
  Company Number: CL-B.I. PHARMACEUTICALS,INC./RIDGEFIELD-2020-BI-011340

PATIENT
  Age: 39 Year

DRUGS (3)
  1. GILOTRIF [Suspect]
     Active Substance: AFATINIB
     Indication: NON-SMALL CELL LUNG CANCER
  2. GILOTRIF [Suspect]
     Active Substance: AFATINIB
     Indication: EGFR GENE MUTATION
     Route: 048
  3. GILOTRIF [Suspect]
     Active Substance: AFATINIB
     Indication: METASTASES TO CENTRAL NERVOUS SYSTEM

REACTIONS (5)
  - Lymphadenopathy [Recovering/Resolving]
  - Deep vein thrombosis [Unknown]
  - Malignant neoplasm progression [Recovering/Resolving]
  - Treatment failure [Unknown]
  - Metastases to liver [Recovering/Resolving]
